FAERS Safety Report 20086105 (Version 1)
Quarter: 2021Q4

REPORT INFORMATION
  Report Type: Spontaneous
  Country: US (occurrence: None)
  Receive Date: 20211117
  Receipt Date: 20211117
  Transmission Date: 20220303
  Serious: No
  Sender: FDA-Public Use
  Company Number: None

PATIENT

DRUGS (4)
  1. DOXYCYCLINE [Suspect]
     Active Substance: DOXYCYCLINE
     Route: 048
  2. DIGOXIN [Suspect]
     Active Substance: DIGOXIN
     Route: 048
  3. DOXYCYCLINE [Suspect]
     Active Substance: DOXYCYCLINE
     Route: 048
  4. DIGOXIN [Suspect]
     Active Substance: DIGOXIN
     Route: 048

REACTIONS (3)
  - Product label confusion [None]
  - Product packaging confusion [None]
  - Intercepted product dispensing error [None]
